FAERS Safety Report 9773567 (Version 1)
Quarter: 2013Q4

REPORT INFORMATION
  Report Type: Spontaneous
  Country: UA (occurrence: None)
  Receive Date: 20131217
  Receipt Date: 20131217
  Transmission Date: 20140711
  Serious: Yes (Other)
  Sender: FDA-Public Use
  Company Number: FK201305317

PATIENT
  Sex: Female

DRUGS (2)
  1. TOPOTECAN [Suspect]
     Indication: NEUROBLASTOMA
  2. CYCLOPHOSPHAN [Suspect]
     Indication: NEUROBLASTOMA

REACTIONS (4)
  - Grand mal convulsion [None]
  - Neutropenia [None]
  - Thrombocytopenia [None]
  - Stomatitis [None]
